FAERS Safety Report 4986973-7 (Version None)
Quarter: 2006Q2

REPORT INFORMATION
  Report Type: 
  Country: None (occurrence: None)
  Receive Date: 20060428
  Receipt Date: 20060428
  Transmission Date: 20061013
  Serious: No
  Sender: FDA-Public Use
  Company Number: None

PATIENT
  Age: 36 Year
  Sex: Female
  Weight: 127.0072 kg

DRUGS (2)
  1. TIZANIDINE HCL [Suspect]
     Indication: MULTIPLE SCLEROSIS
     Dosage: 8 MG ONCE PER DAY PO
     Route: 048
     Dates: start: 20060221, end: 20060321
  2. TIZANIDINE HCL [Suspect]
     Indication: MUSCLE SPASMS
     Dosage: 8 MG ONCE PER DAY PO
     Route: 048
     Dates: start: 20060221, end: 20060321

REACTIONS (2)
  - DRUG INEFFECTIVE [None]
  - PHARMACEUTICAL PRODUCT COMPLAINT [None]
